FAERS Safety Report 16357291 (Version 1)
Quarter: 2019Q2

REPORT INFORMATION
  Report Type: Spontaneous
  Country: US (occurrence: US)
  Receive Date: 20190527
  Receipt Date: 20190527
  Transmission Date: 20190711
  Serious: No
  Sender: FDA-Public Use
  Company Number: US-TEVA-2019-US-1051783

PATIENT
  Age: 33 Year
  Sex: Female
  Weight: 55.35 kg

DRUGS (3)
  1. MAXALT [Concomitant]
     Active Substance: RIZATRIPTAN BENZOATE
  2. AJOVY [Suspect]
     Active Substance: FREMANEZUMAB-VFRM
     Indication: MIGRAINE
     Route: 065
  3. ADDERALL [Concomitant]
     Active Substance: AMPHETAMINE ASPARTATE\AMPHETAMINE SULFATE\DEXTROAMPHETAMINE SACCHARATE\DEXTROAMPHETAMINE SULFATE

REACTIONS (3)
  - Contusion [Unknown]
  - Skin haemorrhage [Unknown]
  - Hyperaesthesia [Unknown]

NARRATIVE: CASE EVENT DATE: 20190101
